FAERS Safety Report 7937457-5 (Version None)
Quarter: 2011Q4

REPORT INFORMATION
  Report Type: 
  Country: None (occurrence: None)
  Receive Date: 20111123
  Receipt Date: 20111118
  Transmission Date: 20120403
  Serious: Yes (Life-Threatening, Hospitalization)
  Sender: FDA-Public Use
  Company Number: PHHO2011US15935

PATIENT
  Sex: Female
  Weight: 58.2 kg

DRUGS (9)
  1. FIORICET [Suspect]
     Indication: HEADACHE
     Dosage: 1 TAB, ORAL, PRN
     Route: 048
     Dates: start: 20100531
  2. ASPIRIN [Suspect]
     Dosage: 325 MG, QD
  3. CALCIUM [Suspect]
  4. AGOMELATINE [Suspect]
     Indication: MAJOR DEPRESSION
     Dosage: 1 MG, UNK
     Route: 060
     Dates: start: 20100824, end: 20110822
  5. ASCORBIC ACID [Suspect]
  6. SHARK CARTILAGE [Suspect]
  7. IBUPROFEN [Suspect]
     Dosage: 400 MG, PRN
     Route: 048
     Dates: start: 19800101
  8. VITAMIN E [Suspect]
  9. FISH OIL [Suspect]

REACTIONS (1)
  - PNEUMOTHORAX [None]
